FAERS Safety Report 8574149-6 (Version None)
Quarter: 2012Q3

REPORT INFORMATION
  Report Type: 
  Country: None (occurrence: None)
  Receive Date: 20120806
  Receipt Date: 20110520
  Transmission Date: 20120928
  Serious: Yes (Death)
  Sender: FDA-Public Use
  Company Number: DE-CELGENEUS-062-21880-12060228

PATIENT
  Age: 81 Year
  Sex: Female
  Weight: 60 kg

DRUGS (6)
  1. MARCUMAR [Concomitant]
     Indication: ANTICOAGULANT THERAPY
     Route: 065
  2. REVLIMID [Suspect]
     Indication: MULTIPLE MYELOMA
     Dosage: 10 MILLIGRAM
     Route: 048
     Dates: start: 20081027
  3. REVLIMID [Suspect]
     Route: 048
     Dates: start: 20090414, end: 20090505
  4. DEXAMETHASONE [Concomitant]
     Indication: MULTIPLE MYELOMA
     Dosage: 20 MILLIGRAM
     Route: 065
     Dates: start: 20081027
  5. BISPHOSPHONATES [Concomitant]
     Indication: ANTICOAGULANT THERAPY
     Route: 065
  6. DEXAMETHASONE [Concomitant]
     Route: 065
     Dates: start: 20090414, end: 20090505

REACTIONS (4)
  - LEUKOPENIA [None]
  - CONSTIPATION [None]
  - PERIPHERAL SENSORY NEUROPATHY [None]
  - MULTIPLE MYELOMA [None]
